FAERS Safety Report 20683029 (Version 1)
Quarter: 2022Q2

REPORT INFORMATION
  Report Type: Spontaneous
  Country: US (occurrence: US)
  Receive Date: 20220407
  Receipt Date: 20220407
  Transmission Date: 20220721
  Serious: Yes (Death, Other)
  Sender: FDA-Public Use
  Company Number: US-BRISTOL-MYERS SQUIBB COMPANY-2022-015434

PATIENT
  Age: 88 Year
  Sex: Male

DRUGS (1)
  1. REVLIMID [Suspect]
     Active Substance: LENALIDOMIDE
     Indication: Diffuse large B-cell lymphoma
     Dosage: DAILY
     Route: 048
     Dates: start: 20201210, end: 20210601

REACTIONS (2)
  - Acute respiratory failure [Fatal]
  - Intentional product use issue [Unknown]

NARRATIVE: CASE EVENT DATE: 20210601
